FAERS Safety Report 8177674 (Version 2)
Quarter: 2013Q1

REPORT INFORMATION
  Report Type: Spontaneous
  Country: US (occurrence: US)
  Receive Date: 20111012
  Receipt Date: 20130129
  Transmission Date: 20140127
  Serious: Yes (Hospitalization)
  Sender: FDA-Public Use
  Company Number: US-GLAXOSMITHKLINE-A0791869A

PATIENT
  Age: 60 Year
  Sex: Male
  Weight: 122.6 kg

DRUGS (11)
  1. AVANDIA [Suspect]
     Indication: TYPE 2 DIABETES MELLITUS
     Dosage: 4MG TWICE PER DAY
     Route: 048
     Dates: start: 2001, end: 200809
  2. AVANDAMET [Suspect]
     Indication: TYPE 2 DIABETES MELLITUS
     Route: 048
     Dates: start: 2004
  3. GLYBURIDE [Concomitant]
  4. LASIX [Concomitant]
  5. DIGOXIN [Concomitant]
  6. METOPROLOL [Concomitant]
  7. LOVASTATIN [Concomitant]
  8. LISINOPRIL [Concomitant]
  9. BENICAR [Concomitant]
  10. ZOCOR [Concomitant]
  11. NAPROXEN [Concomitant]

REACTIONS (3)
  - Angina unstable [Not Recovered/Not Resolved]
  - Cardiac failure congestive [Unknown]
  - Renal injury [Unknown]
